FAERS Safety Report 8456083-5 (Version None)
Quarter: 2012Q2

REPORT INFORMATION
  Report Type: 
  Country: None (occurrence: None)
  Receive Date: 20120621
  Receipt Date: 20120618
  Transmission Date: 20120825
  Serious: Yes (Death, Hospitalization, Other)
  Sender: FDA-Public Use
  Company Number: PHHY2012JP027404

PATIENT
  Age: 65 Year
  Sex: Male

DRUGS (4)
  1. LEVOFLOXACIN [Suspect]
     Dosage: 250 MG, DAILY
     Route: 048
     Dates: start: 20120301, end: 20120319
  2. BORTEZOMIB [Concomitant]
     Indication: BONE LESION
     Dosage: UNK UKN, UNK
     Dates: start: 20120301
  3. ZOMETA [Suspect]
     Indication: BONE LESION
     Dosage: UNK UKN, UNK
     Route: 041
     Dates: start: 20120318
  4. DEXAMETHASONE SODIUM POSPHATE [Concomitant]
     Dosage: UNK UKN, UNK
     Dates: start: 20120301

REACTIONS (5)
  - PNEUMONIA [None]
  - MULTIPLE MYELOMA [None]
  - RENAL FAILURE ACUTE [None]
  - BLOOD CREATININE INCREASED [None]
  - CONDITION AGGRAVATED [None]
